FAERS Safety Report 22028924 (Version 1)
Quarter: 2023Q1

REPORT INFORMATION
  Report Type: Spontaneous
  Country: US (occurrence: None)
  Receive Date: 20230221
  Receipt Date: 20230221
  Transmission Date: 20230417
  Serious: No
  Sender: FDA-Public Use
  Company Number: None

PATIENT
  Age: 46 Year
  Sex: Female

DRUGS (1)
  1. HIPREX [Suspect]
     Active Substance: METHENAMINE HIPPURATE

REACTIONS (7)
  - Nail discolouration [None]
  - Yellow skin [None]
  - Organ failure [None]
  - Pericardial effusion [None]
  - Oedema peripheral [None]
  - Swelling face [None]
  - Cardiac disorder [None]

NARRATIVE: CASE EVENT DATE: 20230221
